FAERS Safety Report 8350427-0 (Version None)
Quarter: 2012Q2

REPORT INFORMATION
  Report Type: 
  Country: None (occurrence: None)
  Receive Date: 20120510
  Receipt Date: 20120502
  Transmission Date: 20120825
  Serious: Yes (Hospitalization)
  Sender: FDA-Public Use
  Company Number: US-BAYER-2012-044394

PATIENT
  Age: 31 Year
  Sex: Female
  Weight: 47.619 kg

DRUGS (10)
  1. YASMIN [Suspect]
     Indication: PELVIC PAIN
  2. LIPITOR [Concomitant]
     Indication: CARDIAC DISORDER
     Dosage: 20 MG, QD
     Dates: start: 20050101, end: 20100101
  3. LORTAB [Concomitant]
     Dosage: 500MG/5MG, EVERY 4 TO 6 HOURS
  4. AMBIEN [Concomitant]
     Indication: INSOMNIA
     Dosage: UNK
     Dates: start: 20060101
  5. LYRICA [Concomitant]
     Dosage: 50 MG, QD
  6. YASMIN [Suspect]
     Indication: MENOPAUSAL SYMPTOMS
     Dosage: UNK
     Dates: start: 20050101, end: 20070101
  7. SYMBICORT [Concomitant]
     Indication: DYSPNOEA
     Dosage: UNK
     Dates: start: 20060101
  8. TOPROL-XL [Concomitant]
     Dosage: 50 MG, QD
  9. FLEXERIL [Concomitant]
     Dosage: 10 MG, TID
  10. SINGULAIR [Concomitant]
     Dosage: 10 MG, HS

REACTIONS (3)
  - ANXIETY [None]
  - DEEP VEIN THROMBOSIS [None]
  - DEPRESSION [None]
